FAERS Safety Report 6804491-8 (Version None)
Quarter: 2010Q2

REPORT INFORMATION
  Report Type: 
  Country: None (occurrence: None)
  Receive Date: 20100628
  Receipt Date: 20070327
  Transmission Date: 20101027
  Serious: No
  Sender: FDA-Public Use
  Company Number: US-PFIZER INC-2007024499

PATIENT
  Sex: Male

DRUGS (1)
  1. GENOTROPIN [Suspect]
     Route: 058

REACTIONS (2)
  - FEELING ABNORMAL [None]
  - NIPPLE DISORDER [None]
